FAERS Safety Report 5762587-6 (Version None)
Quarter: 2008Q2

REPORT INFORMATION
  Report Type: 
  Country: None (occurrence: None)
  Receive Date: 20080609
  Receipt Date: 20080528
  Transmission Date: 20081010
  Serious: Yes (Hospitalization)
  Sender: FDA-Public Use
  Company Number: US-JNJFOC-20080201048

PATIENT
  Sex: Female
  Weight: 63.5 kg

DRUGS (12)
  1. REMICADE [Suspect]
     Route: 042
  2. REMICADE [Suspect]
     Route: 042
  3. REMICADE [Suspect]
     Indication: RHEUMATOID ARTHRITIS
     Route: 042
  4. ARAVA [Concomitant]
  5. PREDNISONE TAB [Concomitant]
  6. ZOLOFT [Concomitant]
  7. AMITRIPTYLINE HCL [Concomitant]
  8. LYRICA [Concomitant]
  9. WELLBUTRIN [Concomitant]
  10. M.V.I. [Concomitant]
  11. VITAMIN B [Concomitant]
  12. DIURETIC [Concomitant]

REACTIONS (6)
  - BLOOD PRESSURE INCREASED [None]
  - HEADACHE [None]
  - INFUSION RELATED REACTION [None]
  - OEDEMA PERIPHERAL [None]
  - RHEUMATOID ARTHRITIS [None]
  - VISION BLURRED [None]
